FAERS Safety Report 17978316 (Version 1)
Quarter: 2020Q3

REPORT INFORMATION
  Report Type: Spontaneous
  Country: DO (occurrence: DO)
  Receive Date: 20200703
  Receipt Date: 20200703
  Transmission Date: 20201103
  Serious: Yes (Death, Other)
  Sender: FDA-Public Use
  Company Number: DO-ROCHE-2635616

PATIENT
  Sex: Male

DRUGS (1)
  1. ACTEMRA [Suspect]
     Active Substance: TOCILIZUMAB
     Indication: COVID-19
     Route: 065

REACTIONS (5)
  - Cardiac arrest [Unknown]
  - Endotracheal intubation [Unknown]
  - Death [Fatal]
  - Off label use [Unknown]
  - Intentional product use issue [Unknown]
